FAERS Safety Report 15635805 (Version 2)
Quarter: 2018Q4

REPORT INFORMATION
  Report Type: Spontaneous
  Country: US (occurrence: US)
  Receive Date: 20181120
  Receipt Date: 20181206
  Transmission Date: 20190205
  Serious: No
  Sender: FDA-Public Use
  Company Number: US-ASTRAZENECA-2018SF40868

PATIENT
  Sex: Female
  Weight: 77.1 kg

DRUGS (2)
  1. BYDUREON BCISE [Suspect]
     Active Substance: EXENATIDE
     Indication: TYPE 2 DIABETES MELLITUS
     Route: 058
     Dates: start: 20180926
  2. LANTUS [Concomitant]
     Active Substance: INSULIN GLARGINE
     Indication: TYPE 1 DIABETES MELLITUS
     Dosage: 60 DAILY
     Route: 058
     Dates: start: 2013

REACTIONS (4)
  - Injection site pain [Recovering/Resolving]
  - Device breakage [Unknown]
  - Injection site extravasation [Unknown]
  - Injection site mass [Recovering/Resolving]
